FAERS Safety Report 6584959-2 (Version None)
Quarter: 2010Q1

REPORT INFORMATION
  Report Type: 
  Country: None (occurrence: None)
  Receive Date: 20100217
  Receipt Date: 20100209
  Transmission Date: 20100710
  Serious: Yes (Hospitalization)
  Sender: FDA-Public Use
  Company Number: FR-SANOFI-AVENTIS-2010SA007499

PATIENT
  Age: 25 Year
  Sex: Female
  Weight: 77 kg

DRUGS (2)
  1. RIFADIN [Suspect]
     Dosage: DOSE:2 UNIT(S)
     Route: 048
     Dates: start: 20091114, end: 20091130
  2. DALACIN [Suspect]
     Route: 048
     Dates: start: 20091114, end: 20091130

REACTIONS (2)
  - AGRANULOCYTOSIS [None]
  - CYTOLYTIC HEPATITIS [None]
